FAERS Safety Report 21550757 (Version 1)
Quarter: 2022Q4

REPORT INFORMATION
  Report Type: Spontaneous
  Country: US (occurrence: US)
  Receive Date: 20221103
  Receipt Date: 20221103
  Transmission Date: 20230113
  Serious: No
  Sender: FDA-Public Use
  Company Number: US-PERRIGO-22US012441

PATIENT

DRUGS (1)
  1. FAMOTIDINE [Suspect]
     Active Substance: FAMOTIDINE
     Indication: Acid base balance abnormal
     Dosage: UNK
     Route: 048
     Dates: start: 202209

REACTIONS (1)
  - Condition aggravated [Unknown]

NARRATIVE: CASE EVENT DATE: 20220901
